FAERS Safety Report 4385092-0 (Version None)
Quarter: 2004Q2

REPORT INFORMATION
  Report Type: 
  Country: None (occurrence: None)
  Receive Date: 20040624
  Receipt Date: 20040624
  Transmission Date: 20050107
  Serious: Yes (Other)
  Sender: FDA-Public Use
  Company Number: None

PATIENT
  Age: 20 Year
  Sex: Female

DRUGS (2)
  1. TRINESSA COMBINATION PRODUCT WATSON [Suspect]
     Indication: CONTRACEPTION
     Dosage: 1 TABLET ONCE DAILY ORAL
     Route: 048
     Dates: start: 20040620, end: 20040622
  2. ORTHO TRI-CYCLEN [Concomitant]

REACTIONS (2)
  - MUSCLE CRAMP [None]
  - PHARMACEUTICAL PRODUCT COMPLAINT [None]
